FAERS Safety Report 13865491 (Version 1)
Quarter: 2017Q3

REPORT INFORMATION
  Report Type: Report from Study
  Country: US (occurrence: US)
  Receive Date: 20170814
  Receipt Date: 20170814
  Transmission Date: 20171127
  Serious: No
  Sender: FDA-Public Use
  Company Number: US-AEGERION PHARMACEUTICAL, INC-AEGR003127

PATIENT
  Sex: Female
  Weight: 56.69 kg

DRUGS (3)
  1. JUXTAPID [Suspect]
     Active Substance: LOMITAPIDE MESYLATE
     Indication: TYPE IIA HYPERLIPIDAEMIA
     Dosage: 5 MG, QD
     Route: 048
     Dates: start: 20150520
  2. STEROIDS [Suspect]
     Active Substance: UNSPECIFIED INGREDIENT
     Indication: MUSCULOSKELETAL PAIN
  3. STEROIDS [Suspect]
     Active Substance: UNSPECIFIED INGREDIENT
     Indication: ARTHRITIS

REACTIONS (4)
  - Arthritis [Unknown]
  - Liver disorder [Unknown]
  - Weight increased [Unknown]
  - Musculoskeletal pain [Unknown]

NARRATIVE: CASE EVENT DATE: 2016
